FAERS Safety Report 24592188 (Version 1)
Quarter: 2024Q4

REPORT INFORMATION
  Report Type: Spontaneous
  Country: US (occurrence: US)
  Receive Date: 20241108
  Receipt Date: 20241108
  Transmission Date: 20250115
  Serious: No
  Sender: ROCHE
  Company Number: US-ROCHE-10000122909

PATIENT
  Sex: Female

DRUGS (1)
  1. XOLAIR [Suspect]
     Active Substance: OMALIZUMAB
     Indication: Idiopathic urticaria
     Dosage: STRENGTH-300MG/2ML
     Route: 058
     Dates: start: 202407

REACTIONS (3)
  - Nausea [Unknown]
  - Somnolence [Unknown]
  - Dizziness [Unknown]
